FAERS Safety Report 9684643 (Version 2)
Quarter: 2013Q4

REPORT INFORMATION
  Report Type: Spontaneous
  Country: DE (occurrence: DE)
  Receive Date: 20131112
  Receipt Date: 20131218
  Transmission Date: 20140711
  Serious: Yes (Hospitalization, Disabling)
  Sender: FDA-Public Use
  Company Number: DE-B.I. PHARMACEUTICALS,INC./RIDGEFIELD-2013-BI-36319DE

PATIENT
  Age: 70 Year
  Sex: Female

DRUGS (5)
  1. PRADAXA [Suspect]
     Indication: ATRIAL FIBRILLATION
     Dosage: 150 MG
     Route: 048
     Dates: end: 20101026
  2. DIGITOXIN [Concomitant]
     Indication: ATRIAL FIBRILLATION
     Dosage: 0.1 MG
     Route: 048
  3. LOCOL [Concomitant]
     Dosage: 40 MG
     Route: 048
  4. BELOCZOK MITE [Concomitant]
     Indication: TACHYCARDIA
     Dosage: 1 ANZ
     Route: 048
  5. BELOCZOK MITE [Concomitant]
     Indication: ATRIAL FIBRILLATION

REACTIONS (4)
  - Ischaemic stroke [Unknown]
  - Aphasia [Recovered/Resolved with Sequelae]
  - Basal ganglia infarction [Recovered/Resolved with Sequelae]
  - Hemiparesis [Recovered/Resolved with Sequelae]
